FAERS Safety Report 18296450 (Version 2)
Quarter: 2020Q3

REPORT INFORMATION
  Report Type: Spontaneous
  Country: AU (occurrence: AU)
  Receive Date: 20200922
  Receipt Date: 20200923
  Transmission Date: 20201103
  Serious: Yes (Other)
  Sender: FDA-Public Use
  Company Number: AU-MYLANLABS-2020M1052244

PATIENT
  Sex: Female

DRUGS (24)
  1. RISPERIDONE. [Interacting]
     Active Substance: RISPERIDONE
     Indication: PRODUCT USED FOR UNKNOWN INDICATION
     Dosage: UNK
  2. PARACETAMOL [Concomitant]
     Active Substance: ACETAMINOPHEN
     Dosage: 1 GRAM, QID
     Route: 048
     Dates: start: 20191230, end: 20200128
  3. CLOZARIL [Interacting]
     Active Substance: CLOZAPINE
     Dosage: 350 MILLIGRAM, PM
     Route: 048
     Dates: start: 20200123
  4. ADAPALENE AND BENZOYL PEROXIDE [Concomitant]
     Active Substance: ADAPALENE\BENZOYL PEROXIDE
     Dosage: 2.5 PERCENT, QD
     Route: 061
     Dates: start: 20191230, end: 20200504
  5. COLOXYL                            /00061602/ [Concomitant]
     Active Substance: DOCUSATE SODIUM
     Dosage: UNK, BID
     Route: 048
     Dates: start: 20200917
  6. MOVICOL [Concomitant]
     Active Substance: POLYETHYLENE GLYCOL 3350\POTASSIUM CHLORIDE\SODIUM BICARBONATE\SODIUM CHLORIDE
     Dosage: UNK, BID
     Route: 048
     Dates: start: 20200917
  7. CLOZARIL [Interacting]
     Active Substance: CLOZAPINE
     Dosage: 350 PM NOCTE
     Route: 048
     Dates: start: 20200917
  8. PARACETAMOL [Concomitant]
     Active Substance: ACETAMINOPHEN
     Dosage: 1 GRAM, BID
     Route: 048
     Dates: start: 20200302
  9. PANTOPRAZOLE [Concomitant]
     Active Substance: PANTOPRAZOLE
     Dosage: 4 GRAM, QD
     Route: 048
     Dates: start: 20200409
  10. ATROPINE. [Concomitant]
     Active Substance: ATROPINE
     Dosage: 2 DROPS, PM (FORMULATION?DROP)
     Route: 060
     Dates: start: 20200917
  11. MOMETASONE [Concomitant]
     Active Substance: MOMETASONE
     Dosage: SPRAY DAILY
     Route: 045
     Dates: start: 20200917
  12. PARACETAMOL [Concomitant]
     Active Substance: ACETAMINOPHEN
     Dosage: 1 GRAM, TID
     Route: 048
     Dates: start: 20200128, end: 20200302
  13. CLOZARIL [Interacting]
     Active Substance: CLOZAPINE
     Dosage: 450 MILLIGRAM, PM
     Route: 048
     Dates: start: 20191230, end: 20200121
  14. PALIPERIDONE. [Interacting]
     Active Substance: PALIPERIDONE
     Indication: PRODUCT USED FOR UNKNOWN INDICATION
     Dosage: UNK
  15. SODIUM VALPROATE [Concomitant]
     Active Substance: VALPROATE SODIUM
     Dosage: 200 MILLIGRAM, AM
     Route: 048
     Dates: start: 20191230, end: 20200821
  16. LACTULOSE. [Concomitant]
     Active Substance: LACTULOSE
     Dosage: 20 MILLILITER, TID
     Route: 048
     Dates: start: 20191230
  17. COLOXYL                            /00061602/ [Concomitant]
     Active Substance: DOCUSATE SODIUM
     Dosage: 2 DOSAGE FORM, BID
     Route: 048
     Dates: start: 20191230
  18. ATROPINE. [Concomitant]
     Active Substance: ATROPINE
     Dosage: 2 DROPS, PM
     Route: 060
     Dates: start: 20200406
  19. FERRO?GRADUMET                     /00023503/ [Concomitant]
     Dosage: MIDDAY
     Route: 048
     Dates: start: 20200917
  20. CLOZARIL [Suspect]
     Active Substance: CLOZAPINE
     Indication: SCHIZOPHRENIA
     Dosage: 350 MILLIGRAM
     Route: 048
     Dates: start: 20191024
  21. HYOSCINE HYDROBROMIDE [Concomitant]
     Active Substance: SCOPOLAMINE HYDROBROMIDE
     Dosage: 300 MICROGRAM, TID
     Route: 048
     Dates: start: 20191230, end: 20200120
  22. SODIUM VALPROATE [Concomitant]
     Active Substance: VALPROATE SODIUM
     Dosage: 500 MG BD
     Route: 048
     Dates: start: 20200917
  23. MOMETASONE [Concomitant]
     Active Substance: MOMETASONE
     Dosage: UNK UNK, QD
     Dates: start: 20200424
  24. MOVICOL [Concomitant]
     Active Substance: POLYETHYLENE GLYCOL 3350\POTASSIUM CHLORIDE\SODIUM BICARBONATE\SODIUM CHLORIDE
     Dosage: UNK UNK, QD
     Route: 048
     Dates: start: 20200425

REACTIONS (3)
  - Constipation [Unknown]
  - Drug interaction [Unknown]
  - Salivary hypersecretion [Unknown]
